FAERS Safety Report 15991646 (Version 1)
Quarter: 2019Q1

REPORT INFORMATION
  Report Type: Spontaneous
  Country: US (occurrence: US)
  Receive Date: 20190221
  Receipt Date: 20190221
  Transmission Date: 20190418
  Serious: No
  Sender: FDA-Public Use
  Company Number: US-TEVA-2019-US-1016523

PATIENT
  Sex: Male

DRUGS (1)
  1. ALPRAZOLAM TABLET [Suspect]
     Active Substance: ALPRAZOLAM
     Route: 065

REACTIONS (3)
  - Oral discomfort [Unknown]
  - Psychomotor hyperactivity [Unknown]
  - Drug ineffective [Unknown]
